FAERS Safety Report 5249064-6 (Version None)
Quarter: 2007Q1

REPORT INFORMATION
  Report Type: 
  Country: None (occurrence: None)
  Receive Date: 20070228
  Receipt Date: 20060712
  Transmission Date: 20070707
  Serious: No
  Sender: FDA-Public Use
  Company Number: US-GLAXOSMITHKLINE-A0612041A

PATIENT
  Age: 44 Year
  Sex: Female

DRUGS (3)
  1. VALTREX [Suspect]
     Dosage: 500MG AS REQUIRED
     Route: 048
     Dates: start: 20030101
  2. CYMBALTA [Concomitant]
  3. XANAX [Concomitant]

REACTIONS (1)
  - ALOPECIA [None]
